FAERS Safety Report 8263239-3 (Version None)
Quarter: 2012Q2

REPORT INFORMATION
  Report Type: 
  Country: None (occurrence: None)
  Receive Date: 20120405
  Receipt Date: 20120330
  Transmission Date: 20120825
  Serious: Yes (Other)
  Sender: FDA-Public Use
  Company Number: US-BAYER-2010-000591

PATIENT
  Age: 26 Year
  Sex: Female
  Weight: 81.633 kg

DRUGS (10)
  1. YAZ [Suspect]
     Indication: CONTRACEPTION
     Dosage: UNK
     Dates: start: 20010101
  2. CIPROFLOXACIN [Concomitant]
     Indication: INFECTION
     Dosage: 250 MG, QD
     Dates: start: 20090101, end: 20090101
  3. FLUCONAZOLE [Concomitant]
     Indication: FUNGAL INFECTION
     Dosage: UNK
     Dates: start: 20040901, end: 20091201
  4. YASMIN [Suspect]
     Indication: ORAL CONTRACEPTION
     Dosage: UNK
     Route: 048
     Dates: start: 20010101
  5. PROAIR HFA [Concomitant]
     Indication: BRONCHITIS
  6. DROSPIRENONE AND ETHINYL ESTRADIOL [Suspect]
     Indication: CONTRACEPTION
     Dosage: UNK
     Dates: start: 20010101
  7. AZITHROMYCIN [Concomitant]
     Indication: INFECTION
     Dosage: 1 DF, QD
     Dates: start: 20090101, end: 20090101
  8. PROAIR HFA [Concomitant]
     Indication: ASTHMA
     Dosage: 2 PUFF(S), QD
     Dates: start: 20090101, end: 20090101
  9. CYMBALTA [Concomitant]
     Indication: ANXIETY
  10. CYMBALTA [Concomitant]
     Indication: DEPRESSION
     Dosage: 30 MG, QD
     Dates: start: 20080101

REACTIONS (3)
  - BILIARY DYSKINESIA [None]
  - CHOLECYSTITIS CHRONIC [None]
  - GALLBLADDER DISORDER [None]
